FAERS Safety Report 6238887-2 (Version None)
Quarter: 2009Q2

REPORT INFORMATION
  Report Type: 
  Country: None (occurrence: None)
  Receive Date: 20090622
  Receipt Date: 20090615
  Transmission Date: 20091009
  Serious: Yes (Other)
  Sender: FDA-Public Use
  Company Number: US-JNJFOC-20090605052

PATIENT
  Sex: Female
  Weight: 108.86 kg

DRUGS (12)
  1. REMICADE [Suspect]
     Route: 042
  2. REMICADE [Suspect]
     Indication: PSORIASIS
     Route: 042
  3. ADDERALL XR 20 [Concomitant]
     Indication: ATTENTION DEFICIT/HYPERACTIVITY DISORDER
  4. EFFEXOR XR [Concomitant]
     Indication: ANTIDEPRESSANT THERAPY
  5. PROZAC [Concomitant]
     Indication: ANTIDEPRESSANT THERAPY
  6. CIPRO [Concomitant]
     Indication: EYE INFECTION
     Dosage: INITIATED ON 25-MAY-2009 AND 05-JUN-2009 (FOR 4 DAYS)
     Route: 031
  7. TRILEPTAL [Concomitant]
     Indication: DRUG THERAPY
  8. INVEGA [Concomitant]
     Indication: DRUG THERAPY
  9. INVEGA [Concomitant]
     Indication: PSYCHOTIC DISORDER
  10. ACCOLATE [Concomitant]
     Indication: ASTHMA
  11. ACCOLATE [Concomitant]
     Indication: MULTIPLE ALLERGIES
  12. ZYRTEC [Concomitant]
     Indication: MULTIPLE ALLERGIES

REACTIONS (3)
  - BIPOLAR DISORDER [None]
  - EYE INFECTION BACTERIAL [None]
  - POLYMENORRHOEA [None]
